FAERS Safety Report 8052307-7 (Version None)
Quarter: 2012Q1

REPORT INFORMATION
  Report Type: 
  Country: None (occurrence: None)
  Receive Date: 20120118
  Receipt Date: 20100329
  Transmission Date: 20120608
  Serious: Yes (Hospitalization)
  Sender: FDA-Public Use
  Company Number: US-UCBSA-009520

PATIENT
  Age: 51 Year
  Sex: Female

DRUGS (5)
  1. GABAPENTIN [Suspect]
     Indication: CONVULSION
     Dates: start: 20100308, end: 20100309
  2. KEPPRA [Suspect]
     Indication: CONVULSION
     Dates: end: 20100308
  3. DILANTIN [Suspect]
     Indication: CONVULSION
     Dates: start: 20100221, end: 20100308
  4. DEXAMETHASONE [Concomitant]
     Dates: start: 20100221
  5. IPILIMUMAB [Suspect]
     Indication: MALIGNANT MELANOMA
     Route: 042
     Dates: start: 20090305

REACTIONS (4)
  - SYNCOPE [None]
  - COMA [None]
  - CONVULSION [None]
  - HYPERSENSITIVITY [None]
